FAERS Safety Report 4924603-0 (Version None)
Quarter: 2006Q1

REPORT INFORMATION
  Report Type: 
  Country: None (occurrence: None)
  Receive Date: 20060222
  Receipt Date: 20060104
  Transmission Date: 20060701
  Serious: Yes (Hospitalization)
  Sender: FDA-Public Use
  Company Number: BR-2005-028056

PATIENT
  Age: 46 Year
  Sex: Female

DRUGS (1)
  1. BETAFERON (INTERFERON BETA - 1B)INJECTION, 250?G [Suspect]
     Indication: MULTIPLE SCLEROSIS
     Dosage: 9.6 MIU, EVERY 2D, SUBCUTANEOUS
     Route: 058
     Dates: start: 20040601

REACTIONS (4)
  - ANAEMIA [None]
  - ARTHRALGIA [None]
  - FEMUR FRACTURE [None]
  - LABORATORY TEST ABNORMAL [None]
